FAERS Safety Report 4309739-X (Version None)
Quarter: 2004Q1

REPORT INFORMATION
  Report Type: 
  Country: None (occurrence: None)
  Receive Date: 20040301
  Receipt Date: 20040223
  Transmission Date: 20041129
  Serious: Yes (Hospitalization, Other)
  Sender: FDA-Public Use
  Company Number: USA-2003-0004042

PATIENT
  Sex: Female

DRUGS (3)
  1. OXYCONTIN [Suspect]
     Indication: PAIN
     Dosage: 80 MG, QID, ORAL
     Route: 048
  2. OXYFAST CONCENTRATE 20MG/ML (OXYCODONE HYDROCHLORIDE) ORAL SOLUTION [Suspect]
     Indication: PAIN
     Dosage: SEE IMAGE
     Route: 048
  3. OXYDOSE () [Suspect]
     Indication: PAIN
     Dosage: UD

REACTIONS (9)
  - CROHN'S DISEASE [None]
  - DRUG DEPENDENCE [None]
  - DRUG INEFFECTIVE [None]
  - INJURY [None]
  - MEDICATION ERROR [None]
  - SKIN GRAFT [None]
  - STAPHYLOCOCCAL INFECTION [None]
  - STOOL ANALYSIS ABNORMAL [None]
  - THERMAL BURN [None]
